FAERS Safety Report 8744379 (Version 2)
Quarter: 2012Q4

REPORT INFORMATION
  Report Type: 
  Country: US (occurrence: US)
  Receive Date: 20120825
  Receipt Date: 20121108
  Transmission Date: 20130627
  Serious: No
  Sender: FDA-Public Use
  Company Number: US-009507513-1208USA003436

PATIENT
  Age: 65 None
  Sex: Male

DRUGS (3)
  1. VICTRELIS [Suspect]
     Indication: HEPATITIS C
     Dosage: UNK
     Dates: start: 20120721
  2. RIBAVIRIN [Suspect]
     Indication: HEPATITIS C
     Dosage: UNK
     Dates: start: 20120622
  3. PEGASYS [Suspect]
     Indication: HEPATITIS C
     Dosage: UNK
     Dates: start: 20120622

REACTIONS (7)
  - Lethargy [Unknown]
  - Somnolence [Unknown]
  - Insomnia [Unknown]
  - Pyrexia [Unknown]
  - Hyperhidrosis [Unknown]
  - Dizziness [Unknown]
  - Accidental overdose [Unknown]
